FAERS Safety Report 11882284 (Version 4)
Quarter: 2016Q1

REPORT INFORMATION
  Report Type: Spontaneous
  Country: JP (occurrence: JP)
  Receive Date: 20151231
  Receipt Date: 20160219
  Transmission Date: 20160526
  Serious: Yes (Other)
  Sender: FDA-Public Use
  Company Number: JP-SA-2015SA218169

PATIENT
  Age: 47 Year
  Sex: Female
  Weight: 44.1 kg

DRUGS (6)
  1. ALLEGRA [Suspect]
     Active Substance: FEXOFENADINE HYDROCHLORIDE
     Indication: SEASONAL ALLERGY
     Route: 048
     Dates: start: 2015, end: 20150228
  2. MAGNESIUM CARBONATE/ALUMINIUM GLYCINATE/ACETYLSALICYLIC ACID [Concomitant]
     Route: 048
     Dates: end: 20150221
  3. PATANOL [Concomitant]
     Active Substance: OLOPATADINE HYDROCHLORIDE
     Indication: CONJUNCTIVITIS ALLERGIC
     Dosage: FORM: OPHTHALMIC SOLUTION
     Route: 047
     Dates: start: 20150214
  4. EVE A [Suspect]
     Active Substance: APRONALIDE\CAFFEINE\IBUPROFEN
     Indication: HEADACHE
     Route: 048
     Dates: end: 20150228
  5. FLUMETHOLON [Concomitant]
     Active Substance: FLUOROMETHOLONE
     Indication: CONJUNCTIVITIS ALLERGIC
     Dosage: FORM:OPHTHALMIC SOLUTION0.1%
     Route: 047
     Dates: start: 20150214
  6. ADVIL [Concomitant]
     Active Substance: IBUPROFEN
     Route: 048

REACTIONS (2)
  - Stevens-Johnson syndrome [Unknown]
  - Drug-induced liver injury [Unknown]
